FAERS Safety Report 8369150-1 (Version None)
Quarter: 2012Q2

REPORT INFORMATION
  Report Type: 
  Country: None (occurrence: None)
  Receive Date: 20120518
  Receipt Date: 20120507
  Transmission Date: 20120825
  Serious: Yes (Death, Other)
  Sender: FDA-Public Use
  Company Number: FR-GENZYME-CLOF-1002141

PATIENT

DRUGS (5)
  1. DEXAMETHASONE [Concomitant]
     Indication: ACUTE LYMPHOCYTIC LEUKAEMIA RECURRENT
     Dosage: 10 MG/M2, QD (5 DAYS)
     Route: 065
     Dates: start: 20090624
  2. ELSPAR [Concomitant]
     Indication: ACUTE LYMPHOCYTIC LEUKAEMIA RECURRENT
     Dosage: 10000 IU/M2, QD (4 DAYS)
     Route: 065
  3. CLOFARABINE [Suspect]
     Indication: ACUTE LYMPHOCYTIC LEUKAEMIA RECURRENT
     Dosage: 32 MG/M2, QD (FOR 5 DAYS)
     Route: 065
     Dates: start: 20090624
  4. MITOXANTRONE [Concomitant]
     Indication: ACUTE LYMPHOCYTIC LEUKAEMIA RECURRENT
     Dosage: 8 MG/M2, QD (2 DAYS)
     Route: 065
     Dates: start: 20090624
  5. ETOPOSIDE [Concomitant]
     Indication: ACUTE LYMPHOCYTIC LEUKAEMIA RECURRENT
     Dosage: 150 MG/M2, QD (3 DAYS)
     Route: 065
     Dates: start: 20090624

REACTIONS (8)
  - SKIN TOXICITY [None]
  - SEPTIC SHOCK [None]
  - NEUROTOXICITY [None]
  - BLOOD BILIRUBIN INCREASED [None]
  - BRONCHOPULMONARY ASPERGILLOSIS [None]
  - TRANSAMINASES INCREASED [None]
  - GASTROINTESTINAL TOXICITY [None]
  - KLEBSIELLA INFECTION [None]
